FAERS Safety Report 10035661 (Version 1)
Quarter: 2014Q1

REPORT INFORMATION
  Report Type: Spontaneous
  Country: US (occurrence: None)
  Receive Date: 20140306
  Receipt Date: 20140306
  Transmission Date: 20141002
  Serious: Yes (Hospitalization)
  Sender: FDA-Public Use
  Company Number: 163-21880-12123152

PATIENT
  Age: 74 Year
  Sex: Male
  Weight: 64.41 kg

DRUGS (1)
  1. REVLIMID [Suspect]
     Indication: B-CELL LYMPHOMA
     Dosage: 21 IN 28 D?PERMANENTLY DISCONTINUED
     Route: 048
     Dates: start: 20121207

REACTIONS (4)
  - Dyspnoea [None]
  - Leukocytosis [None]
  - Thrombocytopenia [None]
  - Anaemia [None]
